FAERS Safety Report 25032303 (Version 1)
Quarter: 2025Q1

REPORT INFORMATION
  Report Type: Spontaneous
  Country: US (occurrence: US)
  Receive Date: 20250303
  Receipt Date: 20250303
  Transmission Date: 20250409
  Serious: Yes (Other)
  Sender: AMGEN
  Company Number: US-AMGEN-USASP2025037307

PATIENT
  Age: 49 Year
  Sex: Female

DRUGS (4)
  1. PREDNISONE [Suspect]
     Active Substance: PREDNISONE
     Indication: Pyoderma gangrenosum
     Dosage: 15 MILLIGRAM, QOD, (15 MG OR 20 MG DOSES ALTERNATING DAILY)
     Route: 048
  2. PREDNISONE [Suspect]
     Active Substance: PREDNISONE
     Dosage: 20 MILLIGRAM, QOD, (15 MG OR 20 MG DOSES ALTERNATING DAILY)
     Route: 048
  3. PREDNISONE [Suspect]
     Active Substance: PREDNISONE
     Dosage: 75 MILLIGRAM, QD
     Route: 048
  4. INFLIXIMAB [Suspect]
     Active Substance: INFLIXIMAB
     Indication: Pyoderma gangrenosum
     Route: 065

REACTIONS (12)
  - Pyoderma gangrenosum [Unknown]
  - Lung abscess [Unknown]
  - Escherichia test positive [Unknown]
  - Enterococcus test positive [Unknown]
  - Peptostreptococcus test positive [Unknown]
  - Streptococcus test positive [Unknown]
  - Abscess limb [Unknown]
  - Antineutrophil cytoplasmic antibody positive [Unknown]
  - Drug effective for unapproved indication [Unknown]
  - Off label use [Unknown]
  - Cough [Unknown]
  - Pleuritic pain [Unknown]
